FAERS Safety Report 9294044 (Version 2)
Quarter: 2013Q2

REPORT INFORMATION
  Report Type: Spontaneous
  Country: US (occurrence: None)
  Receive Date: 20130514
  Receipt Date: 20130524
  Transmission Date: 20140414
  Serious: Yes (Other)
  Sender: FDA-Public Use
  Company Number: AUR-APL-2013-03753

PATIENT
  Age: 21 Year
  Sex: Male

DRUGS (1)
  1. MINOCYCLINE (MINOCYCLINE) [Suspect]
     Indication: ACNE
     Dosage: 200MG (100MG, 2 IN 1 D), UNKNOWN

REACTIONS (9)
  - Weight decreased [None]
  - Fatigue [None]
  - Myalgia [None]
  - Arthritis [None]
  - Livedo reticularis [None]
  - Testicular infarction [None]
  - Anti-neutrophil cytoplasmic antibody positive vasculitis [None]
  - Renal aneurysm [None]
  - Splenic artery aneurysm [None]
